FAERS Safety Report 7878733-4 (Version None)
Quarter: 2011Q4

REPORT INFORMATION
  Report Type: 
  Country: None (occurrence: None)
  Receive Date: 20111021
  Receipt Date: 20110803
  Transmission Date: 20120403
  Serious: No
  Sender: FDA-Public Use
  Company Number: US-006014

PATIENT
  Sex: Male
  Weight: 79.8331 kg

DRUGS (5)
  1. DEGARELIX (240 MG, 240 MG) [Suspect]
     Indication: PROSTATE CANCER
     Dosage: 240 MG 1 X  SUBCUTANEOUS
     Route: 058
     Dates: start: 20090301, end: 20090301
  2. DEGARELIX (240 MG, 240 MG) [Suspect]
     Indication: PROSTATE CANCER
     Dosage: 240 MG 1 X  SUBCUTANEOUS
     Route: 058
     Dates: start: 20110801, end: 20110801
  3. SIMVASTATIN [Concomitant]
  4. HYDROCHLROTOHIAZIDE [Concomitant]
  5. PROTONIX [Concomitant]

REACTIONS (4)
  - INJECTION SITE SWELLING [None]
  - SCROTAL PAIN [None]
  - INJECTION SITE PAIN [None]
  - INJECTION SITE ERYTHEMA [None]
